FAERS Safety Report 6337296-5 (Version None)
Quarter: 2009Q3

REPORT INFORMATION
  Report Type: 
  Country: None (occurrence: None)
  Receive Date: 20090901
  Receipt Date: 20090901
  Transmission Date: 20100115
  Serious: Yes (Life-Threatening, Hospitalization, Disabling, Other)
  Sender: FDA-Public Use
  Company Number: None

PATIENT
  Sex: Female
  Weight: 89.5 kg

DRUGS (12)
  1. CARVEDILOL [Suspect]
     Indication: HYPERTENSION
     Dosage: 1) DOSE ILLEGIBLE; 2) 25MG 1 TIME O47
     Dates: start: 20090630
  2. CARVEDILOL [Suspect]
     Indication: HYPERTENSION
     Dosage: 25 MG 1 TIME 047
     Dates: start: 20090712
  3. BENICAR [Concomitant]
  4. UROCIT-K [Concomitant]
  5. NATURE MADE CHOLEST OFF [Concomitant]
  6. NATURE MADE OMEGA 3 FISH OIL [Concomitant]
  7. TOVIAZ [Concomitant]
  8. HYDROCHLOROTHIAZIDE [Concomitant]
  9. BENICAR [Concomitant]
  10. FUROSEMIDE [Concomitant]
  11. SPIRONOLACTONE [Concomitant]
  12. DETROL LA [Concomitant]

REACTIONS (21)
  - APHASIA [None]
  - ASTHENIA [None]
  - BACK PAIN [None]
  - BALANCE DISORDER [None]
  - BLOOD GLUCOSE DECREASED [None]
  - COGNITIVE DISORDER [None]
  - DYSPHEMIA [None]
  - FALL [None]
  - FEELING ABNORMAL [None]
  - GAIT DISTURBANCE [None]
  - HEADACHE [None]
  - HEART RATE DECREASED [None]
  - HYPERTENSION [None]
  - MENTAL IMPAIRMENT [None]
  - MOVEMENT DISORDER [None]
  - MUSCULAR WEAKNESS [None]
  - NECK PAIN [None]
  - SPEECH DISORDER [None]
  - STARING [None]
  - STRESS [None]
  - TREMOR [None]
